FAERS Safety Report 8407560-4 (Version None)
Quarter: 2012Q2

REPORT INFORMATION
  Report Type: 
  Country: None (occurrence: None)
  Receive Date: 20120604
  Receipt Date: 20120525
  Transmission Date: 20120825
  Serious: Yes (Hospitalization)
  Sender: FDA-Public Use
  Company Number: US-VERTEX PHARMACEUTICALS INC.-AE-2012-007107

PATIENT
  Sex: Male
  Weight: 74.456 kg

DRUGS (4)
  1. CITALOPRAM [Concomitant]
  2. RIBAVIRIN [Concomitant]
     Indication: HEPATITIS C
     Route: 048
     Dates: start: 20120402
  3. INCIVEK [Suspect]
     Indication: HEPATITIS C
     Route: 048
     Dates: start: 20120402
  4. PEG-INTRON [Concomitant]
     Indication: HEPATITIS C
     Route: 058
     Dates: start: 20120402

REACTIONS (4)
  - ABDOMINAL DISCOMFORT [None]
  - SUICIDAL IDEATION [None]
  - MUSCULOSKELETAL DISCOMFORT [None]
  - MIGRAINE [None]
